FAERS Safety Report 7476632-3 (Version None)
Quarter: 2011Q2

REPORT INFORMATION
  Report Type: 
  Country: None (occurrence: None)
  Receive Date: 20110510
  Receipt Date: 20110510
  Transmission Date: 20111010
  Serious: Yes (Other)
  Sender: FDA-Public Use
  Company Number: None

PATIENT
  Age: 57 Year
  Sex: Male
  Weight: 79.3795 kg

DRUGS (1)
  1. CYMBALTA [Suspect]
     Indication: DEPRESSION
     Dosage: 20MG ONCE DAILY PO
     Route: 048
     Dates: start: 20110120, end: 20110422

REACTIONS (6)
  - MOOD ALTERED [None]
  - PARAESTHESIA [None]
  - TINNITUS [None]
  - DRUG WITHDRAWAL SYNDROME [None]
  - VERTIGO [None]
  - LIBIDO DECREASED [None]
